FAERS Safety Report 8286214-1 (Version None)
Quarter: 2012Q2

REPORT INFORMATION
  Report Type: 
  Country: None (occurrence: None)
  Receive Date: 20120416
  Receipt Date: 20120412
  Transmission Date: 20120825
  Serious: No
  Sender: FDA-Public Use
  Company Number: US-PFIZER INC-2012091583

PATIENT
  Sex: Female
  Weight: 74.83 kg

DRUGS (7)
  1. CHANTIX [Suspect]
     Dosage: UNK
     Route: 048
     Dates: start: 20120101, end: 20120301
  2. METFORMIN [Concomitant]
     Indication: DIABETES MELLITUS
     Dosage: 500 MG, 2X/DAY
  3. VYTORIN [Concomitant]
     Indication: BLOOD CHOLESTEROL INCREASED
     Dosage: 10/40 MG DAILY
  4. TRIAMTERENE AND HYDROCHLOROTHIAZIDE [Concomitant]
     Indication: HYPERTENSION
     Dosage: 75/50 MG DAILY
  5. POT CHLOR ER [Concomitant]
     Indication: MINERAL SUPPLEMENTATION
     Dosage: 10 MEQ,DAILY
     Route: 048
  6. METFORMIN [Concomitant]
     Dosage: 1000 MG, 2X/DAY
  7. CHANTIX [Suspect]
     Indication: SMOKING CESSATION THERAPY
     Dosage: 0.5 MG, UNK
     Route: 048
     Dates: start: 20120101, end: 20120101

REACTIONS (5)
  - EMOTIONAL DISORDER [None]
  - DRUG INEFFECTIVE [None]
  - DECREASED APPETITE [None]
  - NAUSEA [None]
  - WEIGHT DECREASED [None]
